FAERS Safety Report 8262813-8 (Version None)
Quarter: 2012Q2

REPORT INFORMATION
  Report Type: 
  Country: None (occurrence: None)
  Receive Date: 20120405
  Receipt Date: 20120327
  Transmission Date: 20120825
  Serious: Yes (Hospitalization)
  Sender: FDA-Public Use
  Company Number: DE-JNJFOC-20120307551

PATIENT
  Sex: Female
  Weight: 110 kg

DRUGS (32)
  1. NALOXONE HYDROCHLORIDE W/TILIDINE HYDROCHLO. [Concomitant]
     Indication: ARTHRALGIA
     Route: 065
  2. TORSEMIDE [Concomitant]
     Indication: PRODUCT USED FOR UNKNOWN INDICATION
     Route: 065
  3. TAPENTADOL HYDROCHLORIDE [Suspect]
     Dosage: PER DAY
     Route: 048
     Dates: start: 20110619, end: 20110629
  4. RAMIPRIL [Concomitant]
     Indication: MITRAL VALVE INCOMPETENCE
     Route: 065
  5. LERCANIDIPINE [Concomitant]
     Indication: MITRAL VALVE INCOMPETENCE
     Route: 065
  6. TAPENTADOL HYDROCHLORIDE [Suspect]
     Indication: ARTHRALGIA
     Dosage: PER DAY
     Route: 048
     Dates: start: 20110619, end: 20110629
  7. RAMIPRIL [Concomitant]
     Indication: SICK SINUS SYNDROME
     Route: 065
  8. NALOXONE HYDROCHLORIDE W/TILIDINE HYDROCHLO. [Concomitant]
     Dosage: 201-300MG PER DAY
     Route: 065
  9. BISOPROLOL FUMARATE [Concomitant]
     Indication: ATRIAL FIBRILLATION
     Route: 065
  10. BISOPROLOL FUMARATE [Concomitant]
     Indication: SICK SINUS SYNDROME
     Route: 065
  11. TAPENTADOL HYDROCHLORIDE [Suspect]
     Route: 048
     Dates: end: 20110711
  12. TAPENTADOL HYDROCHLORIDE [Suspect]
     Dosage: TWICE A DAY
     Route: 048
     Dates: start: 20101021, end: 20101116
  13. TAPENTADOL HYDROCHLORIDE [Suspect]
     Dosage: THRICE A DAY
     Route: 048
     Dates: start: 20110519, end: 20110101
  14. TAPENTADOL HYDROCHLORIDE [Suspect]
     Dosage: THRICE A DAY
     Route: 048
     Dates: start: 20101116, end: 20110121
  15. TAPENTADOL HYDROCHLORIDE [Suspect]
     Dosage: THRICE A DAY
     Route: 048
     Dates: start: 20101116, end: 20110121
  16. TAPENTADOL HYDROCHLORIDE [Suspect]
     Dosage: TWICE A DAY
     Route: 048
     Dates: start: 20110121, end: 20110519
  17. BISOPROLOL FUMARATE [Concomitant]
     Indication: MITRAL VALVE INCOMPETENCE
     Route: 065
  18. LERCANIDIPINE [Concomitant]
     Indication: ATRIAL FIBRILLATION
     Route: 065
  19. LERCANIDIPINE [Concomitant]
     Indication: SICK SINUS SYNDROME
     Route: 065
  20. OMEPRAZOLE [Concomitant]
     Indication: PRODUCT USED FOR UNKNOWN INDICATION
     Route: 065
  21. TAPENTADOL HYDROCHLORIDE [Suspect]
     Dosage: TWICE A DAY
     Route: 048
     Dates: start: 20101021, end: 20101116
  22. TAPENTADOL HYDROCHLORIDE [Suspect]
     Indication: BACK PAIN
     Route: 048
     Dates: end: 20110711
  23. NALOXONE HYDROCHLORIDE W/TILIDINE HYDROCHLO. [Concomitant]
     Dosage: 201-300MG PER DAY
     Route: 065
  24. ALDACTONE [Concomitant]
     Indication: PRODUCT USED FOR UNKNOWN INDICATION
     Route: 065
  25. TAPENTADOL HYDROCHLORIDE [Suspect]
     Dosage: TWICE A DAY
     Route: 048
     Dates: start: 20110121, end: 20110519
  26. TAPENTADOL HYDROCHLORIDE [Suspect]
     Dosage: THRICE A DAY
     Route: 048
     Dates: start: 20110519, end: 20110101
  27. RAMIPRIL [Concomitant]
     Indication: ATRIAL FIBRILLATION
     Route: 065
  28. LAXATIVES [Concomitant]
     Indication: PRODUCT USED FOR UNKNOWN INDICATION
     Route: 065
  29. NALOXONE HYDROCHLORIDE W/TILIDINE HYDROCHLO. [Concomitant]
     Indication: BACK PAIN
     Route: 065
  30. SIMVASTATIN [Concomitant]
     Indication: HYPERCHOLESTEROLAEMIA
     Route: 065
  31. MARCUMAR [Concomitant]
     Indication: PRODUCT USED FOR UNKNOWN INDICATION
     Dosage: MOSTLI 1X0.5
     Route: 065
  32. MAGNESIUM [Concomitant]
     Indication: PRODUCT USED FOR UNKNOWN INDICATION
     Route: 065

REACTIONS (2)
  - RENAL FAILURE [None]
  - HYPERTENSION [None]
